FAERS Safety Report 7073040-4 (Version None)
Quarter: 2010Q4

REPORT INFORMATION
  Report Type: 
  Country: None (occurrence: None)
  Receive Date: 20101029
  Receipt Date: 20100414
  Transmission Date: 20110411
  Serious: No
  Sender: FDA-Public Use
  Company Number: A0855020A

PATIENT
  Age: 66 Year
  Sex: Female

DRUGS (15)
  1. ADVAIR DISKUS 100/50 [Suspect]
     Indication: ASTHMA
     Dosage: 1PUFF TWICE PER DAY
     Route: 055
  2. SINGULAIR [Concomitant]
  3. ALLEGRA [Concomitant]
  4. FLUNISOLIDE [Concomitant]
  5. NEBULIZER [Concomitant]
  6. COMBIVENT [Concomitant]
  7. PRILOSEC [Concomitant]
  8. DICYCLOMINE [Concomitant]
  9. PROVERA [Concomitant]
  10. METANX [Concomitant]
  11. SALSALATE [Concomitant]
  12. METHOCARBAMOL [Concomitant]
  13. CALCIUM W/VITAMIN D [Concomitant]
  14. GAS-X [Concomitant]
  15. FISH OIL [Concomitant]

REACTIONS (2)
  - CANDIDIASIS [None]
  - GLOSSODYNIA [None]
